FAERS Safety Report 21917220 (Version 1)
Quarter: 2023Q1

REPORT INFORMATION
  Report Type: Spontaneous
  Country: DE (occurrence: DE)
  Receive Date: 20230126
  Receipt Date: 20230126
  Transmission Date: 20230418
  Serious: Yes (Other)
  Sender: FDA-Public Use
  Company Number: DE-009507513-2211DEU004847

PATIENT
  Age: 38 Year
  Sex: Female
  Weight: 100 kg

DRUGS (7)
  1. KEYTRUDA [Suspect]
     Active Substance: PEMBROLIZUMAB
     Indication: Triple negative breast cancer
     Dosage: 200 MILLIGRAM, Q3W
     Route: 042
     Dates: start: 20220725, end: 20220725
  2. CARBOPLATIN [Suspect]
     Active Substance: CARBOPLATIN
  3. PACLITAXEL [Suspect]
     Active Substance: PACLITAXEL
     Dosage: UNK
  4. EPIRUBICIN [Concomitant]
     Active Substance: EPIRUBICIN
     Indication: Triple negative breast cancer
     Dosage: 180 MG, IV
     Route: 042
     Dates: start: 20220725
  5. CYCLOPHOSPHAMIDE [Concomitant]
     Active Substance: CYCLOPHOSPHAMIDE
     Indication: Triple negative breast cancer
     Dosage: 1200 MG, IV
     Route: 042
     Dates: start: 20220725
  6. AKYNZEO (NETUPITANT\PALONOSETRON) [Concomitant]
     Active Substance: NETUPITANT\PALONOSETRON
     Indication: Triple negative breast cancer
     Dosage: 1 CAPSULE, ORALLY
     Route: 048
     Dates: start: 20220725
  7. DEXAMETHASONE [Concomitant]
     Active Substance: DEXAMETHASONE
     Indication: Triple negative breast cancer
     Dosage: 12 MG, IV
     Route: 042
     Dates: start: 20220725

REACTIONS (2)
  - Goitre [Recovered/Resolved]
  - Immune-mediated hyperthyroidism [Unknown]

NARRATIVE: CASE EVENT DATE: 20220101
